FAERS Safety Report 10182677 (Version 1)
Quarter: 2014Q2

REPORT INFORMATION
  Report Type: Spontaneous
  Country: US (occurrence: None)
  Receive Date: 20140516
  Receipt Date: 20140516
  Transmission Date: 20141212
  Serious: Yes (Other)
  Sender: FDA-Public Use
  Company Number: IPCA201405-000214

PATIENT
  Sex: Female
  Weight: 48.98 kg

DRUGS (1)
  1. HYDROXYCHLOROQUINE SULFATE (HYDROXYCHLOROQUINE SULFATE) (HYDROXYCHLOROQUINE SULFATE) [Suspect]
     Indication: ARTHRITIS
     Dates: start: 2013

REACTIONS (3)
  - Coeliac disease [None]
  - Weight decreased [None]
  - Body height decreased [None]
